FAERS Safety Report 7817503-X (Version None)
Quarter: 2011Q4

REPORT INFORMATION
  Report Type: 
  Country: None (occurrence: None)
  Receive Date: 20111017
  Receipt Date: 20110929
  Transmission Date: 20120403
  Serious: Yes (Other)
  Sender: FDA-Public Use
  Company Number: JP-ROCHE-789306

PATIENT
  Sex: Female
  Weight: 75 kg

DRUGS (14)
  1. ACTEMRA [Suspect]
     Route: 041
     Dates: start: 20110530, end: 20110530
  2. ENBREL [Suspect]
     Indication: RHEUMATOID ARTHRITIS
     Route: 058
     Dates: start: 20101213, end: 20110323
  3. ACTEMRA [Suspect]
     Indication: RHEUMATOID ARTHRITIS
     Route: 042
     Dates: start: 20101001, end: 20101001
  4. BEZATOL SR [Concomitant]
     Route: 048
     Dates: start: 20080918
  5. CANDESARTAN CILEXETIL [Concomitant]
     Indication: HYPERTENSION
     Route: 048
     Dates: start: 20060922
  6. NORVASC [Concomitant]
     Indication: HYPERTENSION
     Route: 048
     Dates: start: 20060911
  7. CELECOXIB [Concomitant]
     Route: 048
     Dates: start: 20100319
  8. FOLIC ACID [Concomitant]
     Route: 048
     Dates: start: 20100319, end: 20100423
  9. ACTEMRA [Suspect]
     Route: 041
     Dates: start: 20110323, end: 20110323
  10. PREDNISOLONE [Concomitant]
     Indication: RHEUMATOID ARTHRITIS
     Route: 048
     Dates: start: 20100618
  11. REBAMIPIDE [Concomitant]
     Route: 048
     Dates: start: 20100319
  12. NEO-MINOPHAGEN C [Concomitant]
     Route: 042
     Dates: start: 20100924, end: 20110722
  13. ACTEMRA [Suspect]
     Route: 041
     Dates: start: 20101029, end: 20101029
  14. FAMOTIDINE [Concomitant]
     Route: 048
     Dates: start: 20100423, end: 20100625

REACTIONS (6)
  - GASTRITIS ATROPHIC [None]
  - HEPATIC FUNCTION ABNORMAL [None]
  - DECREASED APPETITE [None]
  - NAUSEA [None]
  - ARTHRALGIA [None]
  - HEPATIC STEATOSIS [None]
